FAERS Safety Report 14105292 (Version 2)
Quarter: 2017Q4

REPORT INFORMATION
  Report Type: Spontaneous
  Country: DE (occurrence: GB)
  Receive Date: 20171018
  Receipt Date: 20171026
  Transmission Date: 20180321
  Serious: Yes (Other)
  Sender: FDA-Public Use
  Company Number: GB-MERZ NORTH AMERICA, INC.-17MRZ-00303

PATIENT
  Age: 42 Year
  Sex: Female

DRUGS (7)
  1. XEOMIN [Suspect]
     Active Substance: INCOBOTULINUMTOXINA
     Indication: SKIN WRINKLING
     Dosage: (1 IN 1 TOTAL)
     Dates: start: 20170718, end: 20170718
  2. XEOMIN [Suspect]
     Active Substance: INCOBOTULINUMTOXINA
     Indication: SKIN WRINKLING
     Dosage: 22 IU, 1 IN 1 TOTAL
     Dates: start: 20170718, end: 20170718
  3. XEOMIN [Suspect]
     Active Substance: INCOBOTULINUMTOXINA
     Indication: SKIN WRINKLING
  4. BOTOX [Concomitant]
     Active Substance: ONABOTULINUMTOXINA
     Indication: PRODUCT USED FOR UNKNOWN INDICATION
  5. TRANSATLANTIC PURE ESSENCE(COSMETICS) [Concomitant]
     Indication: SKIN COSMETIC PROCEDURE
     Dosage: 0.2 ML, 1 IN 1 TOTAL (BILATERAL)
     Dates: start: 20170704, end: 20170704
  6. XEOMIN [Suspect]
     Active Substance: INCOBOTULINUMTOXINA
     Indication: SKIN WRINKLING
     Dosage: (12 IU,1 IN 1 TOTAL)
     Dates: start: 20170704, end: 20170704
  7. XEOMIN [Suspect]
     Active Substance: INCOBOTULINUMTOXINA
     Indication: SKIN WRINKLING
     Dosage: 8 IU, 4 X 2 UNITS

REACTIONS (44)
  - Skin necrosis [Unknown]
  - Presyncope [Unknown]
  - Asthenia [Unknown]
  - Cyanosis [Unknown]
  - Panic attack [Unknown]
  - Eye irritation [Unknown]
  - Device dislocation [Unknown]
  - Malaise [Unknown]
  - Motion sickness [Unknown]
  - Eye pain [Unknown]
  - Musculoskeletal stiffness [Unknown]
  - Contusion [Unknown]
  - Vein disorder [Unknown]
  - Injection site pain [Unknown]
  - Dizziness [Unknown]
  - Vision blurred [Unknown]
  - Dysphagia [Unknown]
  - Abdominal pain [Unknown]
  - Nausea [Unknown]
  - Chest pain [Unknown]
  - Eye pruritus [Unknown]
  - Muscle tightness [Unknown]
  - Nodule [Unknown]
  - Diaphragmatic disorder [Unknown]
  - Angiopathy [Unknown]
  - Vitreous floaters [Unknown]
  - Eye disorder [Unknown]
  - Abdominal discomfort [Unknown]
  - Vomiting [Unknown]
  - Anxiety [Unknown]
  - Eye movement disorder [Unknown]
  - Skin discolouration [Unknown]
  - Burning sensation [Unknown]
  - Headache [Unknown]
  - Dizziness [Unknown]
  - Skin disorder [Unknown]
  - Muscular weakness [Unknown]
  - Visual impairment [Unknown]
  - Incorrect route of drug administration [Unknown]
  - Coordination abnormal [Unknown]
  - Diplopia [Unknown]
  - Joint stiffness [Unknown]
  - Muscle disorder [Unknown]
  - Dyspnoea [Unknown]

NARRATIVE: CASE EVENT DATE: 2017
